FAERS Safety Report 8688213 (Version 2)
Quarter: 2012Q4

REPORT INFORMATION
  Report Type: Report from Study
  Country: CA (occurrence: CA)
  Receive Date: 20120727
  Receipt Date: 20120829
  Transmission Date: 20130627
  Serious: Yes (Other)
  Sender: FDA-Public Use
  Company Number: CA-JNJFOC-20120712423

PATIENT
  Sex: Male

DRUGS (6)
  1. SIMPONI [Suspect]
     Indication: RHEUMATOID ARTHRITIS
     Route: 058
     Dates: start: 20120712
  2. SIMPONI [Suspect]
     Indication: RHEUMATOID ARTHRITIS
     Route: 058
     Dates: start: 20120412
  3. PLAQUENIL [Concomitant]
  4. SULFASALAZINE [Concomitant]
  5. PREDNISONE [Concomitant]
     Dates: start: 20120725
  6. PREDNISONE [Concomitant]
     Dates: end: 20120705

REACTIONS (4)
  - Rectal haemorrhage [Recovered/Resolved]
  - Drug effect decreased [Unknown]
  - Insomnia [Unknown]
  - Drug ineffective [Unknown]
